FAERS Safety Report 10691222 (Version 1)
Quarter: 2015Q1

REPORT INFORMATION
  Report Type: Spontaneous
  Country: AU (occurrence: AU)
  Receive Date: 20150105
  Receipt Date: 20150105
  Transmission Date: 20150720
  Serious: Yes (Other)
  Sender: FDA-Public Use
  Company Number: AU-MYLANLABS-2014M1015407

PATIENT

DRUGS (3)
  1. OXYCONTIN [Concomitant]
     Active Substance: OXYCODONE HYDROCHLORIDE
     Indication: PAIN
  2. VALIUM [Concomitant]
     Active Substance: DIAZEPAM
     Indication: PAIN
  3. DENPAX [Suspect]
     Active Substance: FENTANYL
     Indication: PAIN

REACTIONS (2)
  - Drug effect decreased [Recovered/Resolved]
  - Overdose [Recovered/Resolved]
